FAERS Safety Report 4897158-7 (Version None)
Quarter: 2006Q1

REPORT INFORMATION
  Report Type: 
  Country: None (occurrence: None)
  Receive Date: 20060131
  Receipt Date: 20051122
  Transmission Date: 20060701
  Serious: Yes (Death, Hospitalization)
  Sender: FDA-Public Use
  Company Number: US-MERCK-0511USA03864

PATIENT
  Age: 69 Year
  Sex: Male
  Weight: 95 kg

DRUGS (6)
  1. VIOXX [Suspect]
     Indication: ARTHRALGIA
     Route: 048
     Dates: start: 20030325, end: 20031127
  2. IMURAN [Concomitant]
     Route: 048
  3. PREDNISONE [Concomitant]
     Route: 048
  4. BACTRIM [Concomitant]
     Route: 048
  5. NEXIUM [Concomitant]
     Route: 048
  6. NEXIUM [Concomitant]
     Route: 048

REACTIONS (9)
  - BACTERIAL INFECTION [None]
  - BLOOD PRESSURE INCREASED [None]
  - CEREBRAL ARTERY OCCLUSION [None]
  - CEREBROVASCULAR ACCIDENT [None]
  - FUNGAL INFECTION [None]
  - IDIOPATHIC PULMONARY FIBROSIS [None]
  - PNEUMONIA [None]
  - SPUTUM CULTURE POSITIVE [None]
  - UPPER RESPIRATORY TRACT INFECTION [None]
